FAERS Safety Report 25193611 (Version 1)
Quarter: 2025Q2

REPORT INFORMATION
  Report Type: Spontaneous
  Country: US (occurrence: US)
  Receive Date: 20250414
  Receipt Date: 20250414
  Transmission Date: 20250716
  Serious: No
  Sender: AMGEN
  Company Number: US-AMGEN-USASP2025068655

PATIENT
  Age: 38 Year
  Sex: Female

DRUGS (8)
  1. ERENUMAB [Suspect]
     Active Substance: ERENUMAB
     Indication: Migraine
     Dosage: 140 MILLIGRAM, QMO
     Route: 065
     Dates: start: 202010
  2. GALCANEZUMAB [Suspect]
     Active Substance: GALCANEZUMAB
     Indication: Migraine
     Dosage: 240 MG LOADING DOSE, FOLLOWED BY 120 MG MONTHLY
     Route: 065
     Dates: start: 202109
  3. ATENOLOL [Concomitant]
     Active Substance: ATENOLOL
     Indication: Hypertension
     Dates: end: 202108
  4. DILTIAZEM [Concomitant]
     Active Substance: DILTIAZEM
     Indication: Hypertension
     Dates: start: 202108
  5. SUMATRIPTAN [Concomitant]
     Active Substance: SUMATRIPTAN
     Indication: Migraine
     Dates: end: 202012
  6. RIZATRIPTAN [Concomitant]
     Active Substance: RIZATRIPTAN
     Indication: Migraine
     Dates: start: 202012
  7. UBROGEPANT [Concomitant]
     Active Substance: UBROGEPANT
     Indication: Migraine
     Dates: start: 202102
  8. RIMEGEPANT [Concomitant]
     Active Substance: RIMEGEPANT
     Indication: Migraine
     Dosage: 75 MILLIGRAM, QOD
     Dates: start: 202102

REACTIONS (1)
  - Chillblains [Recovering/Resolving]

NARRATIVE: CASE EVENT DATE: 20201001
